FAERS Safety Report 5875532-X (Version None)
Quarter: 2008Q3

REPORT INFORMATION
  Report Type: 
  Country: None (occurrence: None)
  Receive Date: 20080909
  Receipt Date: 20080828
  Transmission Date: 20090109
  Serious: Yes (Hospitalization)
  Sender: FDA-Public Use
  Company Number: DE-ELI_LILLY_AND_COMPANY-DE200808006323

PATIENT
  Sex: Female

DRUGS (2)
  1. YENTREVE [Suspect]
     Indication: URINARY INCONTINENCE
     Dosage: 80 MG (2X40MG), DAILY (1/D)
     Route: 048
  2. LAFAMME [Concomitant]
     Dosage: 2 MG/ 1MG, UNKNOWN
     Route: 065

REACTIONS (1)
  - CEREBROVASCULAR ACCIDENT [None]
